FAERS Safety Report 8361385-7 (Version None)
Quarter: 2012Q2

REPORT INFORMATION
  Report Type: 
  Country: None (occurrence: None)
  Receive Date: 20120515
  Receipt Date: 20120511
  Transmission Date: 20120825
  Serious: Yes (Other)
  Sender: FDA-Public Use
  Company Number: US-BAYER-2012-033990

PATIENT
  Age: 79 Year
  Sex: Male

DRUGS (4)
  1. NEXAVAR [Suspect]
     Indication: HEPATIC NEOPLASM MALIGNANT
     Dosage: 400 MG, BID
     Dates: start: 20120330
  2. NEXAVAR [Suspect]
     Dosage: 200 MG, BID
     Dates: start: 20120429
  3. LISINOPRIL [Concomitant]
     Indication: HYPERTENSION
     Dosage: DAILY DOSE 30 MG
  4. SIMVASTATIN [Concomitant]

REACTIONS (11)
  - HEADACHE [None]
  - BLOOD PRESSURE INCREASED [None]
  - DIARRHOEA [None]
  - PAIN OF SKIN [None]
  - SWELLING FACE [None]
  - ASTHENIA [None]
  - PRURITUS [None]
  - FATIGUE [None]
  - SKIN ULCER [None]
  - GOUT [None]
  - OEDEMA PERIPHERAL [None]
